FAERS Safety Report 14933071 (Version 1)
Quarter: 2018Q2

REPORT INFORMATION
  Report Type: Spontaneous
  Country: US (occurrence: US)
  Receive Date: 20180524
  Receipt Date: 20180524
  Transmission Date: 20180711
  Serious: No
  Sender: FDA-Public Use
  Company Number: US-PFIZER INC-2018211533

PATIENT
  Age: 75 Year
  Sex: Female
  Weight: 67.12 kg

DRUGS (1)
  1. IBRANCE [Suspect]
     Active Substance: PALBOCICLIB
     Indication: BREAST CANCER METASTATIC
     Dosage: 125 MG, CYCLIC,(D 1-21 Q 28 DAYS )
     Route: 048
     Dates: start: 20180501, end: 20180515

REACTIONS (3)
  - White blood cell count decreased [Unknown]
  - Oral mucosal erythema [Unknown]
  - Oral pain [Unknown]
